FAERS Safety Report 9370462 (Version 2)
Quarter: 2013Q3

REPORT INFORMATION
  Report Type: Spontaneous
  Country: JP (occurrence: JP)
  Receive Date: 20130626
  Receipt Date: 20130802
  Transmission Date: 20140515
  Serious: Yes (Life-Threatening, Hospitalization)
  Sender: FDA-Public Use
  Company Number: JP-TEVA-413073USA

PATIENT
  Age: 57 Year
  Sex: Male

DRUGS (9)
  1. BENDAMUSTINE [Suspect]
     Indication: B-CELL LYMPHOMA
     Dosage: UID/QD
     Route: 042
     Dates: start: 20121210, end: 20121211
  2. BENDAMUSTINE [Suspect]
     Dosage: UID/QD
     Route: 042
     Dates: start: 20130107, end: 20130108
  3. BENDAMUSTINE [Suspect]
     Dosage: UID/QD
     Route: 042
     Dates: start: 20130204, end: 20130205
  4. BENDAMUSTINE [Suspect]
     Dosage: UID/QD
     Route: 042
     Dates: start: 20130311, end: 20130312
  5. BENDAMUSTINE [Suspect]
     Dosage: UID/QD
     Route: 042
     Dates: start: 20130422, end: 20130423
  6. RITUXIMAB [Suspect]
     Indication: B-CELL LYMPHOMA
     Dosage: UNKNOWN/D
     Route: 042
     Dates: start: 20130107, end: 20130107
  7. RITUXIMAB [Suspect]
     Dosage: UNKNOWN/D
     Route: 042
     Dates: start: 20130204, end: 20130204
  8. RITUXIMAB [Suspect]
     Dosage: UNKNOWN/D
     Route: 042
     Dates: start: 20130311, end: 20130311
  9. RITUXIMAB [Suspect]
     Dosage: UNKNOWN/D
     Route: 042
     Dates: start: 20130422, end: 20130422

REACTIONS (1)
  - Encephalitis cytomegalovirus [Recovering/Resolving]
